FAERS Safety Report 7084875-6 (Version None)
Quarter: 2010Q4

REPORT INFORMATION
  Report Type: 
  Country: None (occurrence: None)
  Receive Date: 20101027
  Receipt Date: 20101014
  Transmission Date: 20110411
  Serious: Yes (Other)
  Sender: FDA-Public Use
  Company Number: 725959

PATIENT
  Age: 69 Year
  Sex: Female
  Weight: 64.5 kg

DRUGS (3)
  1. CARBOPLATIN [Suspect]
     Indication: NEOPLASM
     Dosage: INTRAVENOUS (NOT OTHERWISE SPECIFIED)
     Route: 042
     Dates: start: 20101008, end: 20101008
  2. BENADRYL [Concomitant]
  3. PACLITAXEL FOR INJECTINO (PACLITAXEL) [Concomitant]

REACTIONS (7)
  - ABDOMINAL PAIN [None]
  - BLOOD PRESSURE SYSTOLIC INCREASED [None]
  - ERYTHEMA [None]
  - NAUSEA [None]
  - RASH GENERALISED [None]
  - URTICARIA [None]
  - VOMITING [None]
